FAERS Safety Report 9199896 (Version 2)
Quarter: 2013Q2

REPORT INFORMATION
  Report Type: Spontaneous
  Country: IT (occurrence: IT)
  Receive Date: 20130329
  Receipt Date: 20130430
  Transmission Date: 20140414
  Serious: Yes (Death)
  Sender: FDA-Public Use
  Company Number: IT-ROCHE-1208002

PATIENT
  Age: 62 Year
  Sex: Male

DRUGS (10)
  1. AVASTIN [Suspect]
     Indication: RECTAL CANCER
     Route: 042
     Dates: start: 20130308, end: 20130308
  2. AMLODIPINE [Concomitant]
     Indication: HYPERTENSION
     Route: 048
     Dates: start: 20130207, end: 20130323
  3. FUROSEMIDE [Concomitant]
     Indication: GRAVITATIONAL OEDEMA
     Route: 048
     Dates: start: 20130207, end: 20130323
  4. CPT-11 [Concomitant]
     Indication: RECTAL CANCER
     Dosage: DOSE REDUCED TO 85%
     Route: 042
     Dates: start: 20130207
  5. CPT-11 [Concomitant]
     Route: 065
     Dates: end: 20130314
  6. DEXAMETHASONE [Concomitant]
     Indication: PROPHYLAXIS OF NAUSEA AND VOMITING
     Route: 042
     Dates: start: 20130207, end: 20130314
  7. HUMALOG [Concomitant]
     Indication: TYPE 2 DIABETES MELLITUS
     Route: 058
     Dates: start: 20130207, end: 20130323
  8. LANTUS [Concomitant]
     Indication: TYPE 2 DIABETES MELLITUS
     Route: 058
     Dates: start: 20130207, end: 20130323
  9. LEDERFOLIN [Concomitant]
     Indication: RECTAL CANCER
     Route: 042
     Dates: start: 20130207, end: 20130314
  10. FLUOROURACILE TEVA [Concomitant]
     Indication: RECTAL CANCER
     Route: 042
     Dates: start: 20130207, end: 20130214

REACTIONS (2)
  - Intestinal perforation [Fatal]
  - Peritonitis [Fatal]
